FAERS Safety Report 9410154 (Version 1)
Quarter: 2013Q3

REPORT INFORMATION
  Report Type: Spontaneous
  Country: US (occurrence: US)
  Receive Date: 20130719
  Receipt Date: 20130719
  Transmission Date: 20140515
  Serious: Yes (Other)
  Sender: FDA-Public Use
  Company Number: US-ABBOTT-13P-163-1118335-00

PATIENT
  Age: 76 Year
  Sex: Female

DRUGS (2)
  1. SYNTHROID [Suspect]
     Indication: HYPOTHYROIDISM
     Dates: start: 201206, end: 20130626
  2. SYNTHROID [Suspect]
     Dosage: VARIOUS DOSES (NOT SPECIFIED)
     Dates: start: 2010

REACTIONS (8)
  - Feeling hot [Recovered/Resolved]
  - Dehydration [Recovered/Resolved]
  - Nausea [Recovered/Resolved]
  - Cardiac failure [Not Recovered/Not Resolved]
  - Heart rate irregular [Not Recovered/Not Resolved]
  - Incorrect drug administration duration [Unknown]
  - Cholelithiasis [Unknown]
  - Fatigue [Not Recovered/Not Resolved]
